FAERS Safety Report 10432887 (Version 1)
Quarter: 2014Q3

REPORT INFORMATION
  Report Type: Spontaneous
  Country: IT (occurrence: IT)
  Receive Date: 20140905
  Receipt Date: 20140905
  Transmission Date: 20150326
  Serious: Yes (Other)
  Sender: FDA-Public Use
  Company Number: IT-ASTRAZENECA-2014SE64596

PATIENT
  Age: 32142 Day
  Sex: Male

DRUGS (5)
  1. LORATADINE. [Concomitant]
     Active Substance: LORATADINE
     Route: 048
  2. XILOCAINA [Suspect]
     Active Substance: LIDOCAINE
     Indication: HYPERKERATOSIS
     Route: 003
     Dates: start: 20140822, end: 20140822
  3. NORMIX [Concomitant]
     Active Substance: RIFAXIMIN
     Route: 048
  4. MEPRAL [Concomitant]
     Active Substance: OMEPRAZOLE SODIUM
     Route: 048
  5. CASODEX [Concomitant]
     Active Substance: BICALUTAMIDE
     Route: 048

REACTIONS (2)
  - Dermatitis bullous [Recovering/Resolving]
  - Pruritus [Recovering/Resolving]

NARRATIVE: CASE EVENT DATE: 20140822
